FAERS Safety Report 8342892-X (Version None)
Quarter: 2012Q2

REPORT INFORMATION
  Report Type: 
  Country: None (occurrence: None)
  Receive Date: 20120508
  Receipt Date: 20120502
  Transmission Date: 20120825
  Serious: Yes (Other)
  Sender: FDA-Public Use
  Company Number: US-PFIZER INC-2012108269

PATIENT
  Age: 58 Year
  Sex: Female

DRUGS (6)
  1. GABAPENTIN [Concomitant]
     Dosage: UNK
  2. PRISTIQ [Suspect]
     Indication: DEPRESSION
     Dosage: UNK
     Dates: start: 20120418
  3. LEVOTHYROXINE [Concomitant]
     Dosage: UNK
  4. PREMARIN [Concomitant]
     Dosage: UNK
  5. TRAZODONE [Concomitant]
     Dosage: UNK
  6. LORTAB [Concomitant]
     Dosage: UNK

REACTIONS (2)
  - PAIN [None]
  - BLOOD PRESSURE INCREASED [None]
